FAERS Safety Report 11055459 (Version 1)
Quarter: 2015Q2

REPORT INFORMATION
  Report Type: Spontaneous
  Country: US (occurrence: US)
  Receive Date: 20150422
  Receipt Date: 20150422
  Transmission Date: 20150821
  Serious: No
  Sender: FDA-Public Use
  Company Number: US-GLAXOSMITHKLINE-US2015GSK054172

PATIENT
  Age: 72 Year
  Sex: Female
  Weight: 59 kg

DRUGS (19)
  1. NICORETTE [Suspect]
     Active Substance: NICOTINE
     Indication: SMOKING CESSATION THERAPY
     Dosage: 2 MG, BID
     Route: 002
     Dates: start: 20150329
  2. XANAX [Concomitant]
     Active Substance: ALPRAZOLAM
  3. VITAMIN D3 [Concomitant]
     Active Substance: CHOLECALCIFEROL
  4. PLAVIX [Concomitant]
     Active Substance: CLOPIDOGREL BISULFATE
  5. BIOTIN [Concomitant]
     Active Substance: BIOTIN
  6. GLUCOSAMINE [Concomitant]
     Active Substance: GLUCOSAMINE
  7. ASPIRIN. [Concomitant]
     Active Substance: ASPIRIN
  8. ESCITALOPRAM [Concomitant]
     Active Substance: ESCITALOPRAM OXALATE
  9. VITAMIN C [Concomitant]
     Active Substance: ASCORBIC ACID
  10. NEXIUM [Concomitant]
     Active Substance: ESOMEPRAZOLE MAGNESIUM
  11. VITAMIN B12 [Concomitant]
     Active Substance: CYANOCOBALAMIN
  12. IRON [Concomitant]
     Active Substance: IRON
  13. COQ10 [Concomitant]
     Active Substance: UBIDECARENONE
  14. CHOLESTYRAMINE. [Concomitant]
     Active Substance: CHOLESTYRAMINE
  15. CHONDROITIN [Concomitant]
     Active Substance: CHONDROITIN
  16. HYOSCYAMINE SULFATE. [Concomitant]
     Active Substance: HYOSCYAMINE SULFATE
  17. ATORVASTATIN [Concomitant]
     Active Substance: ATORVASTATIN
  18. AMLODIPINE [Concomitant]
     Active Substance: AMLODIPINE BESYLATE
  19. CARVEDILOL. [Concomitant]
     Active Substance: CARVEDILOL

REACTIONS (1)
  - Drug ineffective [Unknown]
